FAERS Safety Report 6533512-5 (Version None)
Quarter: 2010Q1

REPORT INFORMATION
  Report Type: 
  Country: None (occurrence: None)
  Receive Date: 20100111
  Receipt Date: 20100106
  Transmission Date: 20100710
  Serious: Yes (Other)
  Sender: FDA-Public Use
  Company Number: US-PFIZER INC-2010003141

PATIENT

DRUGS (1)
  1. CELEBREX [Suspect]

REACTIONS (1)
  - HAEMOPTYSIS [None]
